FAERS Safety Report 14664074 (Version 1)
Quarter: 2018Q1

REPORT INFORMATION
  Report Type: Spontaneous
  Country: US (occurrence: US)
  Receive Date: 20180321
  Receipt Date: 20180321
  Transmission Date: 20180509
  Serious: No
  Sender: FDA-Public Use
  Company Number: US-AAA-201700197

PATIENT
  Age: 61 Year
  Sex: Male
  Weight: 84.1 kg

DRUGS (4)
  1. LANREOTIDE [Concomitant]
     Active Substance: LANREOTIDE
     Indication: CARCINOID TUMOUR OF THE SMALL BOWEL
     Dosage: 120 MG
     Route: 058
     Dates: start: 20170727
  2. ZOFRAN [Concomitant]
     Active Substance: ONDANSETRON HYDROCHLORIDE
     Indication: NAUSEA
     Dosage: 8 MG
     Route: 048
     Dates: start: 20170823
  3. NETSPOT [Suspect]
     Active Substance: DOTATATE GALLIUM GA-68
     Indication: POSITRON EMISSION TOMOGRAM
     Dosage: NUMBER OF SEPARATE DOSAGES: 1
     Route: 042
     Dates: start: 20170823, end: 20170823
  4. COMPAZINE 10 MG TABLET, FILM COATED [Concomitant]
     Indication: NAUSEA
     Dosage: 10 MG
     Route: 048
     Dates: start: 20170823

REACTIONS (1)
  - Scan gallium abnormal [Recovered/Resolved]

NARRATIVE: CASE EVENT DATE: 20170823
